FAERS Safety Report 4455554-6 (Version None)
Quarter: 2004Q3

REPORT INFORMATION
  Report Type: 
  Country: None (occurrence: None)
  Receive Date: 20040917
  Receipt Date: 20040901
  Transmission Date: 20050211
  Serious: Yes (Other)
  Sender: FDA-Public Use
  Company Number: CEL-2004-01651-ROC

PATIENT
  Sex: Female

DRUGS (1)
  1. TUSSIONEX [Suspect]
     Indication: COUGH
     Dosage: 5 ML PRN ROUTE PO
     Route: 048

REACTIONS (4)
  - ASPERGILLOSIS [None]
  - CONSTIPATION [None]
  - DRUG INEFFECTIVE [None]
  - INSOMNIA [None]
